FAERS Safety Report 12218325 (Version 2)
Quarter: 2016Q2

REPORT INFORMATION
  Report Type: Spontaneous
  Country: US (occurrence: US)
  Receive Date: 20160329
  Receipt Date: 20160408
  Transmission Date: 20160815
  Serious: Yes (Other)
  Sender: FDA-Public Use
  Company Number: US-GILEAD-2016-0205594

PATIENT
  Sex: Male

DRUGS (1)
  1. STRIBILD [Suspect]
     Active Substance: COBICISTAT\ELVITEGRAVIR\EMTRICITABINE\TENOFOVIR DISOPROXIL FUMARATE
     Indication: HIV INFECTION
     Route: 048

REACTIONS (5)
  - Viral load increased [Unknown]
  - Drug ineffective [Unknown]
  - CD4 lymphocytes decreased [Unknown]
  - Wrong technique in product usage process [Unknown]
  - Product difficult to swallow [Unknown]
